FAERS Safety Report 17376441 (Version 8)
Quarter: 2020Q4

REPORT INFORMATION
  Report Type: Other
  Country: DE (occurrence: DE)
  Receive Date: 20200206
  Receipt Date: 20201230
  Transmission Date: 20210113
  Serious: Yes (Other)
  Sender: FDA-Public Use
  Company Number: DE-ROCHE-2215494

PATIENT
  Age: 37 Year
  Sex: Female

DRUGS (20)
  1. HYDROMORPHONE [Concomitant]
     Active Substance: HYDROMORPHONE
  2. ZOPICLON [Concomitant]
     Active Substance: ZOPICLONE
     Dosage: 0-0-2 AT NIGHT
     Route: 065
  3. OCREVUS [Suspect]
     Active Substance: OCRELIZUMAB
     Indication: SECONDARY PROGRESSIVE MULTIPLE SCLEROSIS
     Dosage: LAST GIVEN OCRELIZUMAB INFUSION WAS APPLIED IN /MAR/2020.
     Route: 042
     Dates: start: 20181112
  4. GABAPENTIN. [Concomitant]
     Active Substance: GABAPENTIN
     Route: 065
  5. PANTOPRAZOLE [Concomitant]
     Active Substance: PANTOPRAZOLE
     Route: 065
  6. OCREVUS [Suspect]
     Active Substance: OCRELIZUMAB
     Route: 042
     Dates: start: 20190523
  7. OCREVUS [Suspect]
     Active Substance: OCRELIZUMAB
     Route: 042
     Dates: start: 202003
  8. CITALOPRAM [Concomitant]
     Active Substance: CITALOPRAM HYDROBROMIDE
     Route: 065
  9. HYDROMORPHONE [Concomitant]
     Active Substance: HYDROMORPHONE
     Route: 065
  10. HYDROMORPHONE [Concomitant]
     Active Substance: HYDROMORPHONE
     Dosage: AS REQUIRED
  11. SIMVASTATIN. [Concomitant]
     Active Substance: SIMVASTATIN
     Route: 065
  12. NOVALGIN (METAMIZOLE SODIUM) [Concomitant]
     Active Substance: METAMIZOLE SODIUM
  13. OCREVUS [Suspect]
     Active Substance: OCRELIZUMAB
     Route: 042
     Dates: start: 20201007
  14. TRIMIPRAMIN [Concomitant]
     Active Substance: TRIMIPRAMINE
     Route: 065
  15. LANTUS [Concomitant]
     Active Substance: INSULIN GLARGINE
     Dosage: 36 IU - 0 - 42 IU
  16. DOMINAL (GERMANY) [Concomitant]
  17. OCREVUS [Suspect]
     Active Substance: OCRELIZUMAB
     Route: 042
     Dates: start: 20181126
  18. L-THYROXIN [Concomitant]
     Active Substance: LEVOTHYROXINE SODIUM
     Route: 065
  19. IBUPROFEN. [Concomitant]
     Active Substance: IBUPROFEN
     Dosage: AS REQUIRED
     Route: 065
  20. HUMALOG [Concomitant]
     Active Substance: INSULIN LISPRO
     Dosage: AS REQUIRED?BY VALUE AT MEALTIME
     Route: 065

REACTIONS (20)
  - Fatigue [Not Recovered/Not Resolved]
  - Blood glucose increased [Recovered/Resolved]
  - Pain in extremity [Not Recovered/Not Resolved]
  - Multiple sclerosis relapse [Recovered/Resolved]
  - Haematoma [Recovered/Resolved]
  - Pyrexia [Recovered/Resolved]
  - Fall [Unknown]
  - Abdominal pain upper [Not Recovered/Not Resolved]
  - Abdominal discomfort [Not Recovered/Not Resolved]
  - Intentional product use issue [Unknown]
  - Back pain [Not Recovered/Not Resolved]
  - Liver function test increased [Unknown]
  - Blister [Recovered/Resolved]
  - Headache [Recovered/Resolved]
  - Off label use [Unknown]
  - Nasopharyngitis [Recovered/Resolved]
  - Pneumonia [Recovered/Resolved]
  - Face injury [Not Recovered/Not Resolved]
  - Pain in extremity [Recovered/Resolved]
  - Inflammation [Recovered/Resolved]

NARRATIVE: CASE EVENT DATE: 20181112
